FAERS Safety Report 15115607 (Version 1)
Quarter: 2018Q3

REPORT INFORMATION
  Report Type: Spontaneous
  Country: JP (occurrence: JP)
  Receive Date: 20180706
  Receipt Date: 20180706
  Transmission Date: 20181010
  Serious: Yes (Hospitalization)
  Sender: FDA-Public Use
  Company Number: JP-009507513-1807JPN002810

PATIENT
  Age: 66 Year
  Sex: Female

DRUGS (21)
  1. GENINAX [Suspect]
     Active Substance: GARENOXACIN MESYLATE
     Indication: PRODUCTIVE COUGH
     Dosage: UNK
     Route: 065
  2. CLARITH [Suspect]
     Active Substance: CLARITHROMYCIN
     Indication: BRONCHITIS
  3. MONTELUKAST SODIUM. [Suspect]
     Active Substance: MONTELUKAST SODIUM
     Indication: BRONCHITIS
  4. PARIET [Suspect]
     Active Substance: RABEPRAZOLE SODIUM
     Indication: BRONCHITIS
  5. PARIET [Suspect]
     Active Substance: RABEPRAZOLE SODIUM
     Indication: GASTROOESOPHAGEAL REFLUX DISEASE
  6. CALONAL [Suspect]
     Active Substance: ACETAMINOPHEN
     Indication: GASTROOESOPHAGEAL REFLUX DISEASE
  7. MONTELUKAST SODIUM. [Suspect]
     Active Substance: MONTELUKAST SODIUM
     Indication: PRODUCTIVE COUGH
     Dosage: UNK
     Route: 065
  8. FAMOTIDINE D [Suspect]
     Active Substance: FAMOTIDINE
     Indication: BRONCHITIS
  9. PARIET [Suspect]
     Active Substance: RABEPRAZOLE SODIUM
     Indication: PRODUCTIVE COUGH
     Dosage: UNK
     Route: 065
  10. CALONAL [Suspect]
     Active Substance: ACETAMINOPHEN
     Indication: PRODUCTIVE COUGH
     Dosage: UNK
     Route: 065
  11. CALONAL [Suspect]
     Active Substance: ACETAMINOPHEN
     Indication: BRONCHITIS
  12. CARBOCYSTEINE [Suspect]
     Active Substance: CARBOCYSTEINE
     Indication: GASTROOESOPHAGEAL REFLUX DISEASE
  13. MONTELUKAST SODIUM. [Suspect]
     Active Substance: MONTELUKAST SODIUM
     Indication: GASTROOESOPHAGEAL REFLUX DISEASE
  14. GENINAX [Suspect]
     Active Substance: GARENOXACIN MESYLATE
     Indication: BRONCHITIS
  15. FAMOTIDINE D [Suspect]
     Active Substance: FAMOTIDINE
     Indication: PRODUCTIVE COUGH
     Dosage: UNK
     Route: 065
  16. CARBOCYSTEINE [Suspect]
     Active Substance: CARBOCYSTEINE
     Indication: PRODUCTIVE COUGH
     Dosage: UNK
     Route: 065
  17. CARBOCYSTEINE [Suspect]
     Active Substance: CARBOCYSTEINE
     Indication: BRONCHITIS
  18. GENINAX [Suspect]
     Active Substance: GARENOXACIN MESYLATE
     Indication: GASTROOESOPHAGEAL REFLUX DISEASE
  19. FAMOTIDINE D [Suspect]
     Active Substance: FAMOTIDINE
     Indication: GASTROOESOPHAGEAL REFLUX DISEASE
  20. CLARITH [Suspect]
     Active Substance: CLARITHROMYCIN
     Indication: PRODUCTIVE COUGH
     Dosage: UNK
     Route: 065
  21. CLARITH [Suspect]
     Active Substance: CLARITHROMYCIN
     Indication: GASTROOESOPHAGEAL REFLUX DISEASE

REACTIONS (1)
  - Drug-induced liver injury [Unknown]
